FAERS Safety Report 17687370 (Version 2)
Quarter: 2020Q4

REPORT INFORMATION
  Report Type: Report from Study
  Country: PE (occurrence: PE)
  Receive Date: 20200421
  Receipt Date: 20201120
  Transmission Date: 20210113
  Serious: Yes (Other)
  Sender: FDA-Public Use
  Company Number: PE-SA-2020SA103187

PATIENT

DRUGS (4)
  1. CARVEDILOL GENERIC [Concomitant]
     Indication: TACHYCARDIA
     Dosage: UNK
     Dates: start: 2015
  2. HYDROCHLOROTHIAZIDE/IRBESARTAN [Suspect]
     Active Substance: HYDROCHLOROTHIAZIDE\IRBESARTAN
     Indication: ESSENTIAL HYPERTENSION
     Dosage: UNK UNK, QD
     Route: 048
     Dates: start: 20150101
  3. VALSARTAN. [Concomitant]
     Active Substance: VALSARTAN
  4. HYDROCHLOROTHIAZIDE/IRBESARTAN [Suspect]
     Active Substance: HYDROCHLOROTHIAZIDE\IRBESARTAN
     Dosage: 1 DF, QD
     Route: 048
     Dates: start: 20160105

REACTIONS (5)
  - Eye operation [Recovering/Resolving]
  - Cataract [Recovered/Resolved]
  - Visual impairment [Recovering/Resolving]
  - Eye pain [Recovering/Resolving]
  - Dry eye [Recovering/Resolving]

NARRATIVE: CASE EVENT DATE: 20190101
